FAERS Safety Report 22006065 (Version 1)
Quarter: 2023Q1

REPORT INFORMATION
  Report Type: Spontaneous
  Country: US (occurrence: None)
  Receive Date: 20230216
  Receipt Date: 20230216
  Transmission Date: 20230417
  Serious: No
  Sender: FDA-Public Use
  Company Number: None

PATIENT
  Age: 71 Year
  Sex: Female

DRUGS (1)
  1. AUBAGIO [Suspect]
     Active Substance: TERIFLUNOMIDE
     Indication: Multiple sclerosis
     Dosage: 7 MG DAILY ORAL
     Route: 048
     Dates: start: 2017

REACTIONS (2)
  - Heart rate irregular [None]
  - Acute kidney injury [None]

NARRATIVE: CASE EVENT DATE: 20230119
